FAERS Safety Report 5059022-2 (Version None)
Quarter: 2006Q3

REPORT INFORMATION
  Report Type: 
  Country: None (occurrence: None)
  Receive Date: 20060719
  Receipt Date: 20060705
  Transmission Date: 20061208
  Serious: Yes (Death)
  Sender: FDA-Public Use
  Company Number: 163-20785-06040126

PATIENT
  Age: 57 Year
  Sex: Male

DRUGS (1)
  1. THALOMID [Suspect]
     Indication: CALCIPHYLAXIS
     Dosage: 200 MG, 2 IN 1 D, ORAL
     Route: 048
     Dates: start: 20051001, end: 20060401

REACTIONS (3)
  - CALCIPHYLAXIS [None]
  - DERMATITIS [None]
  - DISEASE PROGRESSION [None]
